APPROVED DRUG PRODUCT: ARAZLO
Active Ingredient: TAZAROTENE
Strength: 0.045%
Dosage Form/Route: LOTION;TOPICAL
Application: N211882 | Product #001
Applicant: BAUSCH HEALTH US LLC
Approved: Dec 18, 2019 | RLD: Yes | RS: Yes | Type: RX

PATENTS:
Patent 11311482 | Expires: May 11, 2038
Patent 12128137 | Expires: May 11, 2038
Patent 11679116 | Expires: Jun 6, 2036